FAERS Safety Report 5194656-6 (Version None)
Quarter: 2006Q4

REPORT INFORMATION
  Report Type: 
  Country: None (occurrence: None)
  Receive Date: 20061229
  Receipt Date: 20060922
  Transmission Date: 20070319
  Serious: Yes (Other)
  Sender: FDA-Public Use
  Company Number: PHEH2006US12165

PATIENT
  Age: 58 Year
  Sex: Female
  Weight: 64.399 kg

DRUGS (12)
  1. ZOMETA [Suspect]
     Indication: BREAST CANCER METASTATIC
     Dosage: 4 MG EVERY 28 DAYS
     Dates: start: 20020818, end: 20060502
  2. HERCEPTIN [Concomitant]
  3. NAVELBINE [Concomitant]
  4. ADRIAMYCIN PFS [Concomitant]
  5. CYTOXAN [Concomitant]
  6. XELODA [Concomitant]
  7. CISPLATIN [Concomitant]
  8. CARBOPLATIN [Concomitant]
  9. PACLITAXEL [Concomitant]
  10. AREDIA [Suspect]
  11. LIDOCAINE W/EPINEPHRINE ^SAD^ [Concomitant]
     Dosage: 1.8CC
  12. SEPTOCAINE                              /DEN/ [Concomitant]
     Dosage: 1.8CC

REACTIONS (13)
  - BONE DISORDER [None]
  - GINGIVAL INFECTION [None]
  - ORAL SOFT TISSUE DISORDER [None]
  - OROANTRAL FISTULA [None]
  - OSTEOMYELITIS [None]
  - OSTEONECROSIS [None]
  - PAIN [None]
  - PATHOLOGICAL FRACTURE [None]
  - SINUS DISORDER [None]
  - SOFT TISSUE INFECTION [None]
  - SWELLING [None]
  - TOOTH EXTRACTION [None]
  - WOUND DEBRIDEMENT [None]
